FAERS Safety Report 7233134-7 (Version None)
Quarter: 2011Q1

REPORT INFORMATION
  Report Type: 
  Country: None (occurrence: None)
  Receive Date: 20110119
  Receipt Date: 20110110
  Transmission Date: 20110831
  Serious: Yes (Hospitalization, Other)
  Sender: FDA-Public Use
  Company Number: PHEH2008US01226

PATIENT
  Sex: Female

DRUGS (71)
  1. COUMADIN [Concomitant]
     Dosage: 4 MG/ QD
  2. BACTRIM [Concomitant]
  3. MICARDIS [Concomitant]
     Dosage: 80 MG / DAILY
  4. SALINE [Concomitant]
     Dosage: UNK
  5. AMBIEN [Concomitant]
     Dosage: 10 MG, BY MOUTH, AT BEDTIME AS NEEDED
     Dates: start: 20000404
  6. ACCUPRIL [Concomitant]
     Dosage: TAKE 1 TAB BY MOUTH EVERY DAY
     Dates: start: 20011002
  7. ALBUTEROL [Concomitant]
     Dosage: 2 PUFFS EVERY 4 TO 6 HOURS AS NEEDED
     Dates: start: 20010301
  8. METRONIDAZOLE [Concomitant]
     Dosage: 4 MG TABS, TAKE AS DIRECTED
     Dates: start: 20030812
  9. LINCOCIN [Concomitant]
     Dosage: 300 MG/VIAL, USE ASDIRECTED
     Dates: start: 20040505
  10. SULFAMETHOXAZOLE [Concomitant]
     Dosage: AS DIRECTED
     Dates: start: 20050426
  11. KENALOG [Concomitant]
     Dosage: UNK
  12. ZOFRAN [Concomitant]
     Dosage: 4 MG / EVERY 6 HRS
  13. MELPHALAN [Concomitant]
  14. ZOMETA [Suspect]
     Dosage: 4 MG / MONTHLY
     Dates: start: 20020927, end: 20040401
  15. ACIPHEX [Concomitant]
  16. PROPOXYPHENE HCL AND ACETAMINOPHEN [Concomitant]
     Dosage: 650 MG TABS, BY MOUTH, EVERY 4 HOURS AS NEEDED FOR PAIN
     Dates: start: 20000528
  17. CANDESARTAN [Concomitant]
     Dosage: UNK
  18. DITROPAN [Concomitant]
  19. ADRIAMYCIN PFS [Concomitant]
  20. AREDIA [Suspect]
     Indication: METASTASES TO BONE
     Dosage: 90 MG IV OVER 2 HOURS
     Dates: start: 19960501, end: 20020801
  21. AUGMENTIN '125' [Concomitant]
     Dosage: 875 , BID
     Dates: start: 20080304
  22. AMCILL-S [Concomitant]
     Dosage: UNK
     Dates: start: 20040611
  23. DIURETICS [Concomitant]
     Dosage: UNK
  24. ATROVENT [Concomitant]
     Dosage: UNK
  25. VINCRISTINE [Concomitant]
  26. POTASSIUM CHLORIDE [Concomitant]
  27. ANESTHETICS NOS [Concomitant]
     Dosage: UNK
  28. VIOXX [Concomitant]
     Dosage: 25 MG, BY MOUTH, DAILY
     Dates: start: 20000629
  29. LEVAQUIN [Concomitant]
     Dosage: 500 MG, 1 TAB BY MOUTH DAILY
     Dates: start: 20010309
  30. ULTRACET [Concomitant]
     Dosage: 1 TAB BY MOUTH, EVERY 4 HOURS, AS NEEDED
     Dates: start: 20041201
  31. DECADRON                                /NET/ [Concomitant]
     Dosage: 3 MG / EVERY 8 HRS
  32. NARCAN [Concomitant]
     Dosage: 0.4MG / AS NEEDED
  33. DECADRON [Concomitant]
  34. ASCORBIC ACID [Concomitant]
     Dosage: 500 MG, UNK
  35. VICODIN ES [Concomitant]
     Indication: PAIN
     Dosage: UNK
     Dates: start: 20080213
  36. PEN-VEE K [Concomitant]
     Dosage: 500 MG, QID
     Dates: start: 20080225, end: 20080304
  37. LANOXIN [Concomitant]
     Dosage: 250 MP, TAKE 1 TAB BY MOUTH DAILY
     Dates: start: 20040319
  38. MORPHINE [Concomitant]
     Dosage: 50 MG / AS NEEDED
     Route: 042
  39. ROXICET [Concomitant]
     Indication: PAIN
     Dosage: 5/325 / Q4-6 HRS PRN
     Route: 048
  40. CALCIUM W/VITAMIN D NOS [Concomitant]
  41. OXYCODONE HCL AND ACETAMINOPHEN [Concomitant]
     Dosage: 650 MG TABS
     Dates: start: 20030424
  42. ANTIBIOTICS [Concomitant]
     Indication: ORAL INFECTION
     Dosage: UNK
     Dates: start: 19971201
  43. DOXORUBICIN [Concomitant]
  44. SODIUM CHLORIDE [Concomitant]
     Dosage: 2 ML / EVERY 8 HRS
  45. PERCOCET [Concomitant]
     Dosage: 5MG/325MG / EVERY 4 HRS PRN
  46. THALOMID [Concomitant]
     Dosage: 50 MG, QD
     Route: 048
  47. DEXAMETHASONE [Concomitant]
     Dosage: UNK
     Dates: start: 19950101, end: 19980501
  48. AMOXI [Concomitant]
     Dosage: UNK
  49. NORVASK [Concomitant]
     Dosage: 2.5 MG1 TAB BY MOUTH DAILY
     Dates: start: 20040623
  50. FUROSEMIDE [Concomitant]
     Dosage: AS DIRECDED
     Dates: start: 20050509
  51. INTRON A [Concomitant]
     Dosage: UNK
     Dates: end: 19990501
  52. DIPRIVAN [Concomitant]
     Dosage: UNK
  53. ATACAND [Concomitant]
     Dosage: 32 MG / QD
  54. PERI-COLACE [Concomitant]
     Dosage: UNK / BID
  55. NORVASC [Concomitant]
     Dosage: 5 MG, UNK
  56. VITACON [Concomitant]
  57. AXID [Concomitant]
     Dosage: 150 MG, BID
     Route: 048
  58. CELEBREX [Concomitant]
     Dosage: 200 MG, QD
  59. TOPROL-XL [Concomitant]
     Dosage: 20 MG / DAILY
  60. BUMETANIDE [Concomitant]
  61. CLINDAMYCIN [Concomitant]
     Dosage: 1350 MG / QD
  62. LORAZEPAM [Concomitant]
     Dosage: UNK
  63. CARBOCAINE [Concomitant]
  64. ALLEGRA [Concomitant]
     Dosage: TAKE 1 A DAY AS DIRECTED
     Dates: start: 20010301
  65. KLOR-CON [Concomitant]
     Dosage: 1 TAB BY MOUTH DAILY
     Dates: start: 20010723
  66. PENICILLIN VK [Concomitant]
     Dosage: UNK
     Dates: start: 20040421
  67. AMOXICILLIN [Concomitant]
     Dosage: 500 MG, 2 CAPSULES, 2 TIMES DAILY
     Dates: start: 20040521
  68. TYLENOL [Concomitant]
     Dosage: UNK
  69. LOVENOX [Concomitant]
     Dosage: 45 MG / EVERY 12 HRS
  70. THALIDOMIDE [Concomitant]
     Dosage: 50 MG / BEDTIME
  71. DEXTROSE 5% AND SODIUM CHLORIDE 0.45% IN PLASTIC CONTAINER [Concomitant]
     Dosage: UNK

REACTIONS (87)
  - BONE DISORDER [None]
  - PAIN IN JAW [None]
  - GINGIVAL PAIN [None]
  - SPINAL DISORDER [None]
  - SINUS DISORDER [None]
  - BURSITIS [None]
  - JOINT STIFFNESS [None]
  - FACE OEDEMA [None]
  - ANXIETY [None]
  - GINGIVITIS [None]
  - SICK SINUS SYNDROME [None]
  - DYSPNOEA EXERTIONAL [None]
  - GASTRITIS [None]
  - ORAL INFECTION [None]
  - BLOOD IMMUNOGLOBULIN A INCREASED [None]
  - OEDEMA PERIPHERAL [None]
  - VERTEBRAL FORAMINAL STENOSIS [None]
  - ATRIOVENTRICULAR BLOCK [None]
  - GINGIVAL INFECTION [None]
  - OSTEOMYELITIS [None]
  - ATRIAL FIBRILLATION [None]
  - ASTHMA [None]
  - BACK DISORDER [None]
  - MITRAL VALVE CALCIFICATION [None]
  - ANAEMIA [None]
  - ASTHENIA [None]
  - OSTEOARTHRITIS [None]
  - RESPIRATORY FAILURE [None]
  - BLEPHARITIS [None]
  - ACTINOMYCOSIS [None]
  - LUMBAR SPINAL STENOSIS [None]
  - SQUAMOUS CELL CARCINOMA [None]
  - JAW FRACTURE [None]
  - DENTAL FISTULA [None]
  - PAIN [None]
  - GINGIVAL ULCERATION [None]
  - CONFUSIONAL STATE [None]
  - ENCEPHALOPATHY [None]
  - SPINAL OSTEOARTHRITIS [None]
  - EAR NEOPLASM [None]
  - HYPERTENSION [None]
  - PHYSICAL DISABILITY [None]
  - HYPOAESTHESIA [None]
  - GINGIVAL SWELLING [None]
  - PULMONARY EMBOLISM [None]
  - MYALGIA [None]
  - OSTEITIS [None]
  - CARDIAC DISORDER [None]
  - SPINAL COLUMN STENOSIS [None]
  - LUNG NEOPLASM [None]
  - PERIODONTAL DISEASE [None]
  - ABSCESS JAW [None]
  - INJURY [None]
  - TRANSIENT ISCHAEMIC ATTACK [None]
  - COLON CANCER [None]
  - CAROTID ARTERY STENOSIS [None]
  - FIBROMA [None]
  - ARTHRALGIA [None]
  - SPINAL COMPRESSION FRACTURE [None]
  - OSTEONECROSIS OF JAW [None]
  - MASS [None]
  - ACTIVITIES OF DAILY LIVING IMPAIRED [None]
  - MASTICATION DISORDER [None]
  - DENTAL CARIES [None]
  - MACROGLOSSIA [None]
  - CARDIAC FAILURE CONGESTIVE [None]
  - SINUSITIS [None]
  - DEAFNESS NEUROSENSORY [None]
  - CATARACT [None]
  - PROTEIN URINE PRESENT [None]
  - BLOOD CREATINE PHOSPHOKINASE INCREASED [None]
  - MOUTH ULCERATION [None]
  - OEDEMA MOUTH [None]
  - POLYP [None]
  - DIVERTICULUM [None]
  - CHARLES BONNET SYNDROME [None]
  - SPEECH DISORDER [None]
  - INTRACRANIAL ANEURYSM [None]
  - SUBARACHNOID HAEMORRHAGE [None]
  - OSTEOPENIA [None]
  - VERTIGO [None]
  - BRUXISM [None]
  - SYNOVIAL CYST [None]
  - HERPES ZOSTER [None]
  - SEBORRHOEIC KERATOSIS [None]
  - ORAL DISORDER [None]
  - NEOPLASM MALIGNANT [None]
